FAERS Safety Report 12614999 (Version 1)
Quarter: 2016Q3

REPORT INFORMATION
  Report Type: Spontaneous
  Country: US (occurrence: US)
  Receive Date: 20160802
  Receipt Date: 20160802
  Transmission Date: 20161109
  Serious: No
  Sender: FDA-Public Use
  Company Number: US-PERRIGO-15US010797

PATIENT
  Age: 43 Year
  Sex: Female
  Weight: 86.17 kg

DRUGS (1)
  1. MINOXIDIL. [Suspect]
     Active Substance: MINOXIDIL
     Indication: ALOPECIA
     Dosage: 1 ML, BID
     Route: 061
     Dates: start: 201509, end: 201510

REACTIONS (4)
  - Application site pruritus [Recovering/Resolving]
  - Application site irritation [Recovered/Resolved]
  - Application site erythema [Recovered/Resolved]
  - Application site exfoliation [Recovering/Resolving]

NARRATIVE: CASE EVENT DATE: 201509
